FAERS Safety Report 4571586-1 (Version None)
Quarter: 2005Q1

REPORT INFORMATION
  Report Type: 
  Country: None (occurrence: None)
  Receive Date: 20050203
  Receipt Date: 20050203
  Transmission Date: 20050727
  Serious: Yes (Other)
  Sender: FDA-Public Use
  Company Number: None

PATIENT
  Sex: Female

DRUGS (1)
  1. PERCOCET [Suspect]
     Indication: MASTOIDITIS
     Dosage: 5/325 Q 4 H PRN

REACTIONS (2)
  - FEELING ABNORMAL [None]
  - NAUSEA [None]
